FAERS Safety Report 15806033 (Version 2)
Quarter: 2019Q1

REPORT INFORMATION
  Report Type: Report from Study
  Country: US (occurrence: US)
  Receive Date: 20190110
  Receipt Date: 20190328
  Transmission Date: 20190417
  Serious: Yes (Hospitalization, Other)
  Sender: FDA-Public Use
  Company Number: US-SA-2015SA137905

PATIENT
  Age: 82 Year
  Sex: Male

DRUGS (1)
  1. INSULIN GLARGINE [Suspect]
     Active Substance: INSULIN GLARGINE
     Indication: TYPE 2 DIABETES MELLITUS
     Dosage: 15-20 UNITS DAILY
     Route: 058
     Dates: start: 20100615

REACTIONS (5)
  - Coma [Unknown]
  - Intentional product use issue [Unknown]
  - Fall [Unknown]
  - Blood glucose increased [Not Recovered/Not Resolved]
  - Tracheostomy [Unknown]

NARRATIVE: CASE EVENT DATE: 20150515
